FAERS Safety Report 6730225-1 (Version None)
Quarter: 2010Q2

REPORT INFORMATION
  Report Type: 
  Country: None (occurrence: None)
  Receive Date: 20100518
  Receipt Date: 20100511
  Transmission Date: 20101027
  Serious: Yes (Hospitalization, Disabling)
  Sender: FDA-Public Use
  Company Number: BR-SANOFI-AVENTIS-2010SA025912

PATIENT
  Sex: Female

DRUGS (12)
  1. LANTUS [Suspect]
     Route: 058
     Dates: start: 20080101, end: 20100401
  2. LANTUS [Suspect]
     Dosage: 28-30 UNITS
     Route: 058
     Dates: start: 20100401
  3. AUTOPEN 24 [Suspect]
     Dates: start: 20080101
  4. NOVORAPID [Concomitant]
     Dates: start: 20090901
  5. PURAN T4 [Concomitant]
     Indication: THYROID DISORDER
     Route: 048
     Dates: start: 20100101
  6. DRUG USED IN DIABETES [Concomitant]
     Route: 048
  7. AMLODIPINE BESYLATE [Concomitant]
     Route: 048
  8. ATORVASTATIN CALCIUM [Concomitant]
     Route: 048
  9. RIVOTRIL [Concomitant]
     Indication: ANTIDEPRESSANT THERAPY
     Route: 048
  10. TRAMADOL HYDROCHLORIDE AND ACETAMINOPHEN [Concomitant]
     Indication: DEPRESSION
     Route: 048
  11. OMEPRAZOLE [Concomitant]
     Route: 048
  12. TRAZODONE HYDROCHLORIDE [Concomitant]
     Route: 048

REACTIONS (8)
  - BACK PAIN [None]
  - BLOOD CHOLESTEROL ABNORMAL [None]
  - BLOOD GLUCOSE INCREASED [None]
  - BLOOD THYROID STIMULATING HORMONE DECREASED [None]
  - BLOOD TRIGLYCERIDES ABNORMAL [None]
  - INTERVERTEBRAL DISC PROTRUSION [None]
  - MOVEMENT DISORDER [None]
  - PAIN IN EXTREMITY [None]
